FAERS Safety Report 19749936 (Version 1)
Quarter: 2021Q3

REPORT INFORMATION
  Report Type: Spontaneous
  Country: GB (occurrence: GB)
  Receive Date: 20210826
  Receipt Date: 20210826
  Transmission Date: 20211014
  Serious: Yes (Disabling, Other)
  Sender: FDA-Public Use
  Company Number: GB-ORGANON-O2108GBR001942

PATIENT
  Age: 23 Year
  Sex: Male
  Weight: 84.81 kg

DRUGS (2)
  1. MINOXIDIL. [Concomitant]
     Active Substance: MINOXIDIL
     Indication: ILL-DEFINED DISORDER
     Dosage: UNK
  2. FINASTERIDE. [Suspect]
     Active Substance: FINASTERIDE
     Indication: ALOPECIA
     Dosage: 0.5 MILLILITER
     Route: 048
     Dates: start: 20200618, end: 20201015

REACTIONS (3)
  - Joint swelling [Recovered/Resolved]
  - Arthralgia [Recovered/Resolved]
  - Scleritis [Recovered/Resolved with Sequelae]

NARRATIVE: CASE EVENT DATE: 20200913
